FAERS Safety Report 5646455-6 (Version None)
Quarter: 2008Q1

REPORT INFORMATION
  Report Type: 
  Country: None (occurrence: None)
  Receive Date: 20080303
  Receipt Date: 20080227
  Transmission Date: 20080703
  Serious: Yes (Other)
  Sender: FDA-Public Use
  Company Number: ES-BRISTOL-MYERS SQUIBB COMPANY-14085344

PATIENT
  Age: 68 Year
  Sex: Male

DRUGS (1)
  1. TRIAMCINOLONE ACETONIDE [Suspect]
     Indication: MACULOPATHY
     Dosage: MEAN RECOVERED DOSE 2.52 MG IN 0.1ML
     Route: 031

REACTIONS (2)
  - ENDOPHTHALMITIS [None]
  - RETINAL DETACHMENT [None]
